FAERS Safety Report 23577367 (Version 2)
Quarter: 2024Q1

REPORT INFORMATION
  Report Type: Spontaneous
  Country: US (occurrence: US)
  Receive Date: 20240228
  Receipt Date: 20240306
  Transmission Date: 20240409
  Serious: No
  Sender: FDA-Public Use
  Company Number: US-MYLANLABS-2024M1017464

PATIENT
  Sex: Female
  Weight: 89.36 kg

DRUGS (1)
  1. ESTRADIOL TRANSDERMAL SYSTEM [Suspect]
     Active Substance: ESTRADIOL
     Indication: Product used for unknown indication
     Dosage: 0.1 MILLIGRAM, ONCE WEEKLY
     Route: 062

REACTIONS (4)
  - Application site irritation [Unknown]
  - Application site rash [Unknown]
  - Application site burn [Unknown]
  - Product adhesion issue [Unknown]
